FAERS Safety Report 4733017-8 (Version None)
Quarter: 2005Q3

REPORT INFORMATION
  Report Type: 
  Country: None (occurrence: None)
  Receive Date: 20050801
  Receipt Date: 20050801
  Transmission Date: 20060218
  Serious: Yes (Death, Hospitalization)
  Sender: FDA-Public Use
  Company Number: None

PATIENT
  Age: 54 Year
  Sex: Female
  Weight: 80.2867 kg

DRUGS (13)
  1. AVASTIN [Suspect]
     Indication: CHEMOTHERAPY
     Dosage: 786.40 MG D1 AND 15 Q 28 INTRAVENOU
     Route: 042
     Dates: start: 20041004, end: 20050223
  2. AVASTIN [Suspect]
     Indication: PANCREATIC CARCINOMA
     Dosage: 786.40 MG D1 AND 15 Q 28 INTRAVENOU
     Route: 042
     Dates: start: 20041004, end: 20050223
  3. LIPITOR [Concomitant]
  4. LABETOL [Concomitant]
  5. ALPHAGAN [Concomitant]
  6. LEXAPRO [Concomitant]
  7. COMPAZINE [Concomitant]
  8. ZOFRAN [Concomitant]
  9. COLACE [Concomitant]
  10. REGLAN [Concomitant]
  11. FIORICET [Concomitant]
  12. AMBIEN [Concomitant]
  13. AVASTATIN [Concomitant]

REACTIONS (13)
  - ABDOMINAL PAIN [None]
  - ABDOMINAL REBOUND TENDERNESS [None]
  - BACK PAIN [None]
  - DYSPNOEA [None]
  - INTESTINAL PERFORATION [None]
  - INTRACARDIAC THROMBUS [None]
  - LOSS OF CONSCIOUSNESS [None]
  - NAUSEA [None]
  - PERITONITIS BACTERIAL [None]
  - PULMONARY ARTERY THROMBOSIS [None]
  - PYREXIA [None]
  - VENA CAVA THROMBOSIS [None]
  - VOMITING [None]
